FAERS Safety Report 7362190-0 (Version None)
Quarter: 2011Q1

REPORT INFORMATION
  Report Type: 
  Country: None (occurrence: None)
  Receive Date: 20110318
  Receipt Date: 20110308
  Transmission Date: 20110831
  Serious: Yes (Death)
  Sender: FDA-Public Use
  Company Number: AU-SANOFI-AVENTIS-2011SA014641

PATIENT

DRUGS (11)
  1. ZOLPIDEM TARTRATE [Suspect]
     Route: 065
  2. OXYCODONE [Suspect]
     Route: 065
  3. MORPHINE SULFATE [Suspect]
     Route: 065
  4. DIAZEPAM [Suspect]
     Route: 065
  5. TRAMADOL [Suspect]
     Route: 065
  6. QUETIAPINE FUMARATE [Suspect]
     Route: 065
  7. OLANZAPINE [Suspect]
     Route: 065
  8. AMISULPRIDE [Suspect]
     Route: 065
  9. LITHIUM (SALT NOT SPECIFIED) [Suspect]
     Route: 065
  10. CODEINE PHOSPHATE [Suspect]
     Route: 065
  11. ALPRAZOLAM [Suspect]
     Route: 065

REACTIONS (4)
  - COMPLETED SUICIDE [None]
  - TOXICITY TO VARIOUS AGENTS [None]
  - INTENTIONAL OVERDOSE [None]
  - DRUG ADMINISTRATION ERROR [None]
